FAERS Safety Report 9207038 (Version 1)
Quarter: 2013Q2

REPORT INFORMATION
  Report Type: Spontaneous
  Country: US (occurrence: US)
  Receive Date: 20130403
  Receipt Date: 20130403
  Transmission Date: 20140414
  Serious: No
  Sender: FDA-Public Use
  Company Number: US-009507513-1304USA001469

PATIENT
  Sex: Female

DRUGS (1)
  1. A + D ORIGINAL OINTMENT [Suspect]
     Indication: RASH
     Dosage: UNK, UNKNOWN
     Route: 061
     Dates: start: 20120820

REACTIONS (1)
  - Drug effect decreased [Unknown]
